FAERS Safety Report 20572376 (Version 1)
Quarter: 2022Q1

REPORT INFORMATION
  Report Type: Spontaneous
  Country: US (occurrence: None)
  Receive Date: 20220308
  Receipt Date: 20220308
  Transmission Date: 20220424
  Serious: Yes (Hospitalization)
  Sender: FDA-Public Use
  Company Number: None

PATIENT
  Age: 57 Year
  Sex: Male

DRUGS (20)
  1. OPSUMIT [Suspect]
     Active Substance: MACITENTAN
     Indication: Pulmonary arterial hypertension
     Dosage: FREQUENCY : DAILY;?
     Route: 048
     Dates: start: 20190301
  2. ADEMPAS [Concomitant]
     Active Substance: RIOCIGUAT
  3. ALBUTEROL HFA [Concomitant]
  4. FLONASE [Concomitant]
  5. WIXELA INHUB [Concomitant]
  6. SPIRIVA RESPIMAT [Concomitant]
  7. CRESTOR [Concomitant]
  8. ABILIFY [Concomitant]
  9. K-TAB [Concomitant]
  10. METFORMIN [Concomitant]
     Active Substance: METFORMIN HYDROCHLORIDE
  11. WARFARIN [Concomitant]
  12. VENLAFAXINE [Concomitant]
  13. METOLAZONE [Concomitant]
  14. VIT- C [Concomitant]
  15. OMEPRAZOLE [Concomitant]
  16. SPIRONOLACTONE [Concomitant]
  17. PROZAC [Concomitant]
  18. LASIX [Concomitant]
  19. VITAMIN D [Concomitant]
  20. VITAMIN B COMPLEX [Concomitant]

REACTIONS (5)
  - Dyspnoea exertional [None]
  - Cardiac failure congestive [None]
  - Pulmonary hypertension [None]
  - Sleep apnoea syndrome [None]
  - Positive airway pressure therapy [None]

NARRATIVE: CASE EVENT DATE: 20220228
